FAERS Safety Report 4302069-1 (Version None)
Quarter: 2004Q1

REPORT INFORMATION
  Report Type: 
  Country: None (occurrence: None)
  Receive Date: 20040220
  Receipt Date: 20040210
  Transmission Date: 20041129
  Serious: No
  Sender: FDA-Public Use
  Company Number: 03P-028-0239301-00

PATIENT
  Age: 77 Year
  Sex: Female

DRUGS (1)
  1. SYNTHROID [Suspect]
     Indication: DRUG USE FOR UNKNOWN INDICATION
     Dosage: 75 MCG, 1 IN 1 D, PER ORAL
     Route: 048

REACTIONS (10)
  - ANOREXIA [None]
  - ANXIETY [None]
  - CHRONIC LYMPHOCYTIC LEUKAEMIA [None]
  - DIARRHOEA [None]
  - JOINT SWELLING [None]
  - NAUSEA [None]
  - PHARMACEUTICAL PRODUCT COMPLAINT [None]
  - POLYDIPSIA [None]
  - VOMITING [None]
  - WEIGHT DECREASED [None]
